FAERS Safety Report 4371230-2 (Version None)
Quarter: 2004Q2

REPORT INFORMATION
  Report Type: 
  Country: None (occurrence: None)
  Receive Date: 20040604
  Receipt Date: 20040525
  Transmission Date: 20050107
  Serious: Yes (Other)
  Sender: FDA-Public Use
  Company Number: PHBS2004ZA07082

PATIENT
  Age: 45 Year
  Sex: Male

DRUGS (4)
  1. LESCOL [Suspect]
     Indication: HYPERCHOLESTEROLAEMIA
     Dosage: 40 MG/DAY
     Route: 048
     Dates: start: 20010101, end: 20030105
  2. LESCOL XL [Suspect]
     Indication: HYPERCHOLESTEROLAEMIA
     Dosage: 80 MG/DAY
     Route: 048
     Dates: start: 20030106, end: 20040429
  3. GLUCOPHAGE [Concomitant]
  4. CO-DIOVAN [Concomitant]

REACTIONS (7)
  - BLOOD BILIRUBIN INCREASED [None]
  - BLOOD BILIRUBIN UNCONJUGATED INCREASED [None]
  - BLOOD INSULIN INCREASED [None]
  - HYPERTENSION [None]
  - MYALGIA [None]
  - MYOGLOBIN BLOOD INCREASED [None]
  - WEIGHT INCREASED [None]
